FAERS Safety Report 7775488-9 (Version None)
Quarter: 2011Q3

REPORT INFORMATION
  Report Type: 
  Country: None (occurrence: None)
  Receive Date: 20110923
  Receipt Date: 20110922
  Transmission Date: 20111222
  Serious: Yes (Death)
  Sender: FDA-Public Use
  Company Number: PHHY2011CR83979

PATIENT
  Age: 95 Year
  Sex: Female

DRUGS (3)
  1. HYDROCHLOROTHIAZIDE [Concomitant]
     Dosage: UNK UKN, UNK
  2. EXELON [Suspect]
     Indication: DISORIENTATION
     Dosage: 3.0 MG, UNK
  3. GLYBURIDE [Concomitant]
     Dosage: UNK UKN, UNK

REACTIONS (2)
  - DEATH [None]
  - DYSPHAGIA [None]
